FAERS Safety Report 4962265-7 (Version None)
Quarter: 2006Q2

REPORT INFORMATION
  Report Type: 
  Country: None (occurrence: None)
  Receive Date: 20060404
  Receipt Date: 20060327
  Transmission Date: 20061013
  Serious: Yes (Other)
  Sender: FDA-Public Use
  Company Number: FR-AVENTIS-200611132FR

PATIENT
  Age: 55 Year
  Sex: Male

DRUGS (4)
  1. LOVENOX [Suspect]
     Indication: THROMBOSIS PROPHYLAXIS
     Route: 058
     Dates: start: 20060317
  2. TERCIAN [Concomitant]
     Route: 048
  3. ZYPREXA [Concomitant]
     Route: 048
  4. ANALGESICS [Concomitant]
     Dates: start: 20060301

REACTIONS (1)
  - THROMBOCYTHAEMIA [None]
